FAERS Safety Report 5400076-9 (Version None)
Quarter: 2007Q3

REPORT INFORMATION
  Report Type: 
  Country: None (occurrence: None)
  Receive Date: 20070726
  Receipt Date: 20070726
  Transmission Date: 20080115
  Serious: Yes (Hospitalization)
  Sender: FDA-Public Use
  Company Number: None

PATIENT
  Age: 68 Year
  Sex: Female
  Weight: 52.6173 kg

DRUGS (2)
  1. DOCETAXEL [Suspect]
     Indication: NON-SMALL CELL LUNG CANCER
     Dosage: 70 MG/M2C D1 Q 21 DAYS IV DRIP
     Route: 041
     Dates: start: 20070718, end: 20070718
  2. ERLOTINIB [Suspect]
     Indication: NON-SMALL CELL LUNG CANCER
     Dosage: 200 MG D2-16 Q 21 DAYS PO
     Route: 048
     Dates: start: 20070719, end: 20070723

REACTIONS (5)
  - ACUTE PRERENAL FAILURE [None]
  - CONDITION AGGRAVATED [None]
  - DIARRHOEA [None]
  - HYPERCALCAEMIA [None]
  - RENAL FAILURE ACUTE [None]
